FAERS Safety Report 5533682-1 (Version None)
Quarter: 2007Q4

REPORT INFORMATION
  Report Type: 
  Country: None (occurrence: None)
  Receive Date: 20071129
  Receipt Date: 20071122
  Transmission Date: 20080405
  Serious: Yes (Other)
  Sender: FDA-Public Use
  Company Number: TPG2007A00735

PATIENT
  Age: 62 Year
  Sex: Male

DRUGS (13)
  1. ACTOS [Suspect]
     Indication: DIABETES MELLITUS
     Dosage: 30 MG PER ORAL, 45 MG PER ORAL, 30 MG PER ORAL
     Route: 048
     Dates: start: 20061001, end: 20070801
  2. ACTOS [Suspect]
     Indication: DIABETES MELLITUS
     Dosage: 30 MG PER ORAL, 45 MG PER ORAL, 30 MG PER ORAL
     Route: 048
     Dates: start: 20070817, end: 20070910
  3. ACTOS [Suspect]
     Indication: DIABETES MELLITUS
     Dosage: 30 MG PER ORAL, 45 MG PER ORAL, 30 MG PER ORAL
     Route: 048
     Dates: start: 20070901
  4. BERLINSULIN H BASAL (INSULIN INJECTION, ISOPHANE) [Concomitant]
  5. BERLINSULIN H NORMAL (INSULIN) [Concomitant]
  6. DELIX PLUS (HYDROCHLOROTHIAZIDE, RAMIPRIL) [Concomitant]
  7. DIGIMERCK MINOR (DIGITOXIN) [Concomitant]
  8. CARVEDILOL [Concomitant]
  9. MARCUMAR [Concomitant]
  10. RAMIPRIL [Concomitant]
  11. SIMVABETA (SIMVASTATIN) [Concomitant]
  12. SPIRO (SPIRONOLACTONE) [Concomitant]
  13. TORSEMIDE [Concomitant]

REACTIONS (1)
  - PROCTITIS HAEMORRHAGIC [None]
